FAERS Safety Report 11019057 (Version 2)
Quarter: 2015Q2

REPORT INFORMATION
  Report Type: Spontaneous
  Country: US (occurrence: US)
  Receive Date: 20150412
  Receipt Date: 20150529
  Transmission Date: 20150821
  Serious: Yes (Hospitalization, Other)
  Sender: FDA-Public Use
  Company Number: US-JNJFOC-20100805619

PATIENT
  Age: 31 Year
  Sex: Male

DRUGS (5)
  1. LEVAQUIN [Suspect]
     Active Substance: LEVOFLOXACIN
     Indication: GASTROINTESTINAL INFECTION
     Route: 048
     Dates: start: 19980101, end: 20001231
  2. LEVAQUIN [Suspect]
     Active Substance: LEVOFLOXACIN
     Indication: INFECTION
     Route: 048
     Dates: start: 19980101, end: 20001231
  3. LEVAQUIN [Suspect]
     Active Substance: LEVOFLOXACIN
     Indication: ENDOSCOPY
     Route: 048
     Dates: start: 19980101, end: 20001231
  4. LEVAQUIN [Suspect]
     Active Substance: LEVOFLOXACIN
     Indication: PROSTATE INFECTION
     Route: 048
     Dates: start: 19980101, end: 20001231
  5. LEVAQUIN [Suspect]
     Active Substance: LEVOFLOXACIN
     Indication: COLONOSCOPY
     Route: 048
     Dates: start: 19980101, end: 20001231

REACTIONS (3)
  - Tendon rupture [Unknown]
  - Musculoskeletal pain [Unknown]
  - Tendonitis [Unknown]

NARRATIVE: CASE EVENT DATE: 200001
